FAERS Safety Report 25262231 (Version 1)
Quarter: 2025Q2

REPORT INFORMATION
  Report Type: Report from Study
  Country: US (occurrence: US)
  Receive Date: 20250502
  Receipt Date: 20250502
  Transmission Date: 20250717
  Serious: Yes (Hospitalization)
  Sender: EMD SERONO INC
  Company Number: US-Merck Healthcare KGaA-2025021251

PATIENT
  Age: 89 Year
  Sex: Male

DRUGS (1)
  1. TEPMETKO [Suspect]
     Active Substance: TEPOTINIB HYDROCHLORIDE
     Indication: Product used for unknown indication
     Dosage: 225MG ORAL QD

REACTIONS (3)
  - Lymphoedema [Recovering/Resolving]
  - Blood pressure decreased [Recovering/Resolving]
  - Off label use [Unknown]
